FAERS Safety Report 5387355-9 (Version None)
Quarter: 2007Q3

REPORT INFORMATION
  Report Type: 
  Country: None (occurrence: None)
  Receive Date: 20070716
  Receipt Date: 20070702
  Transmission Date: 20080115
  Serious: Yes (Other)
  Sender: FDA-Public Use
  Company Number: US-ELI_LILLY_AND_COMPANY-US200703006008

PATIENT
  Age: 66 Year
  Sex: Male

DRUGS (19)
  1. FORTEO [Suspect]
     Indication: OSTEOPOROSIS
     Dosage: UNK, UNK
     Dates: start: 20060601, end: 20070228
  2. CLARINEX [Concomitant]
  3. LASIX [Concomitant]
  4. PRILOSEC [Concomitant]
  5. ALBUTEROL [Concomitant]
     Route: 055
  6. ATIVAN [Concomitant]
  7. SUCRABEST [Concomitant]
  8. HEPARIN [Concomitant]
  9. DIOVAN [Concomitant]
  10. K-DUR 10 [Concomitant]
  11. MAGNESIUM OXIDE [Concomitant]
  12. LEXAPRO [Concomitant]
  13. NORVASC [Concomitant]
  14. RANITIDINE [Concomitant]
  15. SENOKOT [Concomitant]
  16. TENEX [Concomitant]
  17. TOPROL-XL [Concomitant]
  18. TRAZODONE HCL [Concomitant]
  19. XOPENEX [Concomitant]

REACTIONS (9)
  - AORTIC CALCIFICATION [None]
  - CHOLELITHIASIS [None]
  - DIVERTICULUM [None]
  - FALL [None]
  - INGUINAL HERNIA [None]
  - LUNG NEOPLASM [None]
  - OSTEOARTHRITIS [None]
  - OSTEOSARCOMA LOCALISED [None]
  - SPINAL OSTEOARTHRITIS [None]
